FAERS Safety Report 25818123 (Version 1)
Quarter: 2025Q3

REPORT INFORMATION
  Report Type: Spontaneous
  Country: US (occurrence: None)
  Receive Date: 20250918
  Receipt Date: 20250918
  Transmission Date: 20251020
  Serious: Yes (Life-Threatening, Hospitalization, Disabling)
  Sender: FDA-CTU
  Company Number: None

PATIENT
  Age: 63 Year
  Sex: Female
  Weight: 121.95 kg

DRUGS (6)
  1. KEYTRUDA [Suspect]
     Active Substance: PEMBROLIZUMAB
     Indication: Endometrial adenocarcinoma
     Route: 042
     Dates: start: 20231211, end: 20240603
  2. MAG-G 500 MG TABLET [Concomitant]
  3. HYDROCORTISONE 5 MG [Concomitant]
  4. D-3 5000 IU [Concomitant]
  5. B-12 500 MCG [Concomitant]
  6. ZYRTEC [Concomitant]
     Active Substance: CETIRIZINE HYDROCHLORIDE

REACTIONS (10)
  - Adrenal insufficiency [None]
  - Back pain [None]
  - Urine odour abnormal [None]
  - Circulatory collapse [None]
  - Adrenocortical insufficiency acute [None]
  - Dehydration [None]
  - Infection [None]
  - Blood electrolytes abnormal [None]
  - Hypothalamic pituitary adrenal axis suppression [None]
  - Product monitoring error [None]

NARRATIVE: CASE EVENT DATE: 20250205
